FAERS Safety Report 10397667 (Version 3)
Quarter: 2014Q3

REPORT INFORMATION
  Report Type: Spontaneous
  Country: CA (occurrence: CA)
  Receive Date: 20140821
  Receipt Date: 20140828
  Transmission Date: 20150326
  Serious: Yes (Hospitalization)
  Sender: FDA-Public Use
  Company Number: CA-009507513-1407CAN007592

PATIENT
  Age: 48 Year
  Sex: Female

DRUGS (3)
  1. PEGASYS [Suspect]
     Active Substance: PEGINTERFERON ALFA-2A
     Indication: CHRONIC HEPATITIS C
     Dosage: 180 MICROGRAM, QW (0.5 ML PRE-FILLED SYRINGE)
     Route: 058
     Dates: start: 20140528
  2. VICTRELIS [Suspect]
     Active Substance: BOCEPREVIR
     Indication: CHRONIC HEPATITIS C
     Dosage: 800 MG, TID
     Route: 048
  3. COPEGUS [Suspect]
     Active Substance: RIBAVIRIN
     Indication: CHRONIC HEPATITIS C
     Dosage: 1200 MG QD, (COPEGUS 42 TABLET/WEEK)
     Route: 048
     Dates: start: 20140528

REACTIONS (7)
  - Asthenia [Recovering/Resolving]
  - Fall [Unknown]
  - Fatigue [Unknown]
  - Tremor [Recovering/Resolving]
  - Somnolence [Unknown]
  - Influenza [Not Recovered/Not Resolved]
  - Glossodynia [Unknown]

NARRATIVE: CASE EVENT DATE: 2014
